FAERS Safety Report 5246711-X (Version None)
Quarter: 2007Q1

REPORT INFORMATION
  Report Type: 
  Country: None (occurrence: None)
  Receive Date: 20070216
  Receipt Date: 20070206
  Transmission Date: 20070707
  Serious: Yes (Hospitalization)
  Sender: FDA-Public Use
  Company Number: 26254

PATIENT
  Age: 60 Year
  Sex: Female
  Weight: 65.7716 kg

DRUGS (16)
  1. NIASPAN [Suspect]
     Indication: CARDIAC DISORDER
     Dosage: 500 MG QHS PO
     Route: 048
     Dates: start: 20070105, end: 20070108
  2. NIASPAN [Suspect]
     Indication: DYSLIPIDAEMIA
     Dosage: 500 MG QHS PO
     Route: 048
     Dates: start: 20070105, end: 20070108
  3. VERAPAMIL [Concomitant]
  4. ACIPHEX [Concomitant]
  5. MOTRIN [Concomitant]
  6. APRAZOLAM [Concomitant]
  7. ARTHRO-7 [Concomitant]
  8. PROBIOTICS ACIDOPHILUS [Concomitant]
  9. CALCIUM [Concomitant]
  10. COCONUT OIL [Concomitant]
  11. PANTOTHENIC ACID [Concomitant]
  12. CHAMOMILE [Concomitant]
  13. AC BERRY [Concomitant]
  14. FISH OIL [Concomitant]
  15. VITAMIN B COMPLEX CAP [Concomitant]
  16. ESTER-C [Concomitant]

REACTIONS (12)
  - ABDOMINAL DISCOMFORT [None]
  - ASTHENIA [None]
  - CARDIAC ENZYMES INCREASED [None]
  - COLD SWEAT [None]
  - CORONARY ARTERIAL STENT INSERTION [None]
  - CORONARY ARTERY OCCLUSION [None]
  - DIZZINESS [None]
  - DYSPEPSIA [None]
  - HEADACHE [None]
  - MUSCLE INJURY [None]
  - NAUSEA [None]
  - VISION BLURRED [None]
